FAERS Safety Report 17498561 (Version 2)
Quarter: 2020Q1

REPORT INFORMATION
  Report Type: Spontaneous
  Country: US (occurrence: US)
  Receive Date: 20200304
  Receipt Date: 20200325
  Transmission Date: 20200409
  Serious: No
  Sender: FDA-Public Use
  Company Number: US-BAUSCH-BL-2020-005515

PATIENT
  Age: 61 Year
  Sex: Male
  Weight: 108.96 kg

DRUGS (2)
  1. LUMIFY [Suspect]
     Active Substance: BRIMONIDINE TARTRATE
     Indication: OCULAR HYPERAEMIA
     Dosage: STARTED SEVERAL MONTHS AGO
     Route: 047
     Dates: end: 202002
  2. LUMIFY [Suspect]
     Active Substance: BRIMONIDINE TARTRATE
     Dosage: NEW BOTTLE CAUSED BURNING
     Route: 047
     Dates: start: 2020

REACTIONS (4)
  - Product quality issue [Unknown]
  - Eye pain [Recovered/Resolved]
  - Eye irritation [Not Recovered/Not Resolved]
  - Product counterfeit [Unknown]

NARRATIVE: CASE EVENT DATE: 2020
